FAERS Safety Report 25550292 (Version 2)
Quarter: 2025Q3

REPORT INFORMATION
  Report Type: Spontaneous
  Country: US (occurrence: US)
  Receive Date: 20250714
  Receipt Date: 20250717
  Transmission Date: 20251020
  Serious: No
  Sender: TORRENT PHARMA INC.
  Company Number: US-TORRENT-00014404

PATIENT
  Sex: Female
  Weight: 68 kg

DRUGS (4)
  1. DAPSONE [Suspect]
     Active Substance: DAPSONE
     Indication: Product used for unknown indication
     Route: 065
     Dates: start: 20250625, end: 20250628
  2. Baronite [Concomitant]
     Indication: Product used for unknown indication
     Route: 065
  3. CRYSELLE [Concomitant]
     Active Substance: ETHINYL ESTRADIOL\NORGESTREL
     Indication: Product used for unknown indication
     Route: 065
  4. SERTRALINE HYDROCHLORIDE [Concomitant]
     Active Substance: SERTRALINE HYDROCHLORIDE
     Indication: Product used for unknown indication
     Route: 065

REACTIONS (4)
  - Dry skin [Not Recovered/Not Resolved]
  - Skin exfoliation [Not Recovered/Not Resolved]
  - Instillation site foreign body sensation [Not Recovered/Not Resolved]
  - Product physical consistency issue [Unknown]

NARRATIVE: CASE EVENT DATE: 20250626
